FAERS Safety Report 10583629 (Version 4)
Quarter: 2015Q1

REPORT INFORMATION
  Report Type: Report from Study
  Country: US (occurrence: US)
  Receive Date: 20141114
  Receipt Date: 20150209
  Transmission Date: 20150720
  Serious: Yes (Death, Life-Threatening, Hospitalization, Other)
  Sender: FDA-Public Use
  Company Number: PHEH2014US022670

PATIENT
  Sex: Female
  Weight: 36.74 kg

DRUGS (1)
  1. TOBI PODHALER [Suspect]
     Active Substance: TOBRAMYCIN
     Indication: CYSTIC FIBROSIS
     Dosage: 112 MG, BID
     Route: 055
     Dates: start: 20140712, end: 20140818

REACTIONS (5)
  - Terminal state [Unknown]
  - Bronchiectasis [Fatal]
  - Pneumonia [Unknown]
  - Sepsis [Unknown]
  - Respiratory failure [Fatal]
